FAERS Safety Report 8353700-5 (Version None)
Quarter: 2012Q2

REPORT INFORMATION
  Report Type: 
  Country: None (occurrence: None)
  Receive Date: 20120511
  Receipt Date: 20110825
  Transmission Date: 20120825
  Serious: No
  Sender: FDA-Public Use
  Company Number: US-GLAXOSMITHKLINE-A0943391A

PATIENT
  Age: 78 Year
  Sex: Female
  Weight: 64 kg

DRUGS (5)
  1. SYNTHROID [Concomitant]
  2. AMLODIPINE BESYLATE [Concomitant]
  3. TYKERB [Suspect]
     Indication: PRODUCT USED FOR UNKNOWN INDICATION
     Dosage: 750MG TWICE PER DAY
     Route: 065
     Dates: start: 20110817
  4. METOPROLOL TARTRATE [Concomitant]
  5. PROTONIX [Concomitant]

REACTIONS (9)
  - ENERGY INCREASED [None]
  - DYSPHAGIA [None]
  - PRURITUS [None]
  - STOMATITIS [None]
  - DECREASED ACTIVITY [None]
  - INAPPROPRIATE SCHEDULE OF DRUG ADMINISTRATION [None]
  - FATIGUE [None]
  - DIARRHOEA [None]
  - EYE PRURITUS [None]
